FAERS Safety Report 5813423-0 (Version None)
Quarter: 2008Q3

REPORT INFORMATION
  Report Type: 
  Country: None (occurrence: None)
  Receive Date: 20080715
  Receipt Date: 20080715
  Transmission Date: 20090109
  Serious: No
  Sender: FDA-Public Use
  Company Number: None

PATIENT
  Age: 62 Year
  Sex: Male
  Weight: 113 kg

DRUGS (1)
  1. SITAGLIPTIN [Suspect]
     Indication: DIABETES MELLITUS
     Dates: start: 20071203, end: 20080520

REACTIONS (2)
  - RASH [None]
  - SINUSITIS [None]
